FAERS Safety Report 14859174 (Version 1)
Quarter: 2018Q2

REPORT INFORMATION
  Report Type: Spontaneous
  Country: US (occurrence: US)
  Receive Date: 20180508
  Receipt Date: 20180508
  Transmission Date: 20180711
  Serious: No
  Sender: FDA-Public Use
  Company Number: US-ALLERGAN-1735082US

PATIENT
  Sex: Female

DRUGS (2)
  1. LACTAID [Concomitant]
     Active Substance: LACTASE
     Indication: ABDOMINAL DISTENSION
     Dosage: 2 DF, QD
     Route: 065
     Dates: start: 201707
  2. MICROGESTIN 24 FE [Suspect]
     Active Substance: ETHINYL ESTRADIOL\NORETHINDRONE ACETATE
     Indication: PRODUCT USED FOR UNKNOWN INDICATION
     Dosage: 1.5
     Route: 065
     Dates: start: 201610

REACTIONS (2)
  - Abdominal distension [Unknown]
  - Chest discomfort [Unknown]

NARRATIVE: CASE EVENT DATE: 201707
